FAERS Safety Report 5725354-5 (Version None)
Quarter: 2008Q2

REPORT INFORMATION
  Report Type: 
  Country: None (occurrence: None)
  Receive Date: 20080422
  Receipt Date: 20080412
  Transmission Date: 20081010
  Serious: Yes (Life-Threatening, Hospitalization)
  Sender: FDA-Public Use
  Company Number: 200813220

PATIENT
  Sex: Female

DRUGS (1)
  1. HUMATE-P [Suspect]
     Indication: VON WILLEBRAND'S DISEASE
     Dosage: IV
     Route: 042
     Dates: start: 20080412, end: 20080412

REACTIONS (3)
  - COAGULOPATHY [None]
  - DRUG EXPOSURE DURING PREGNANCY [None]
  - EXPIRED DRUG ADMINISTERED [None]
